FAERS Safety Report 9897202 (Version 3)
Quarter: 2014Q1

REPORT INFORMATION
  Report Type: Spontaneous
  Country: CZ (occurrence: CZ)
  Receive Date: 20140214
  Receipt Date: 20140306
  Transmission Date: 20141002
  Serious: Yes (Hospitalization, Disabling, Other)
  Sender: FDA-Public Use
  Company Number: CZ-AMGEN-CZESP2014010320

PATIENT
  Age: 67 Year
  Sex: Female

DRUGS (4)
  1. ENBREL [Suspect]
     Indication: RHEUMATOID ARTHRITIS
     Dosage: 50 MG, WEEKLY
     Route: 058
     Dates: start: 20040519, end: 20131120
  2. PREDNISONE ^LECIVA^             /00044702/ [Concomitant]
     Indication: RHEUMATOID ARTHRITIS
     Dosage: 5 MG, 1X/DAY
     Route: 048
  3. ACIDUM FOLICUM [Concomitant]
     Dosage: 10 MG, 3X/DAY
     Route: 048
  4. METHOTREXAT                        /00113801/ [Concomitant]
     Indication: RHEUMATOID ARTHRITIS
     Dosage: 2.5 MG, 4X/WEEK
     Route: 048

REACTIONS (2)
  - Activities of daily living impaired [Unknown]
  - Adenocarcinoma of colon [Recovered/Resolved with Sequelae]
